FAERS Safety Report 10977673 (Version 2)
Quarter: 2015Q1

REPORT INFORMATION
  Report Type: Spontaneous
  Country: US (occurrence: None)
  Receive Date: 20150226
  Receipt Date: 20150226
  Transmission Date: 20150721
  Serious: No
  Sender: FDA-Public Use
  Company Number: TPA2009A01316

PATIENT
  Age: 60 Year
  Sex: Female
  Weight: 64.86 kg

DRUGS (6)
  1. CAPOTEN (CAPTOPRIL) [Concomitant]
  2. INSULIN (INSULIN) [Concomitant]
     Active Substance: INSULIN NOS
  3. PROCRIT (ERYTHROPOIETIN) [Concomitant]
  4. CRESTOR [Concomitant]
     Active Substance: ROSUVASTATIN CALCIUM
  5. ULORIC [Suspect]
     Active Substance: FEBUXOSTAT
     Indication: GOUTY TOPHUS
     Dosage: 40 MG, PM
     Route: 048
     Dates: start: 20090527, end: 20090529
  6. PROBENECID (PROBENECID) [Concomitant]

REACTIONS (3)
  - Urticaria [None]
  - Pruritus [None]
  - Blood creatinine increased [None]

NARRATIVE: CASE EVENT DATE: 20090528
